FAERS Safety Report 7035409-3 (Version None)
Quarter: 2010Q4

REPORT INFORMATION
  Report Type: 
  Country: None (occurrence: None)
  Receive Date: 20101008
  Receipt Date: 20100928
  Transmission Date: 20110411
  Serious: Yes (Other)
  Sender: FDA-Public Use
  Company Number: AU-PFIZER INC-2009286076

PATIENT
  Age: 64 Year
  Sex: Female
  Weight: 75 kg

DRUGS (9)
  1. ZOLOFT [Suspect]
     Indication: ANXIETY DISORDER
     Dosage: 50 MG IN THE MORNING
     Dates: start: 20090201
  2. SEREPAX [Concomitant]
     Indication: INSOMNIA
     Dosage: 60 MG, 1X/DAY
  3. ALDACTONE [Concomitant]
     Indication: FLUID RETENTION
     Dosage: UNK
  4. LASIX [Concomitant]
     Dosage: UNK
  5. TENORMIN [Concomitant]
     Indication: BLOOD PRESSURE MANAGEMENT
     Dosage: HALF A UNIT
  6. SOMAC [Concomitant]
     Indication: DYSPEPSIA
     Dosage: UNK
  7. ZANTAC [Concomitant]
     Indication: DYSPEPSIA
     Dosage: UNK
  8. ZOCOR [Concomitant]
     Indication: BLOOD CHOLESTEROL ABNORMAL
     Dosage: UNK
  9. INDOCIN [Concomitant]
     Indication: BACK DISORDER
     Dosage: UNK

REACTIONS (4)
  - DYSPNOEA [None]
  - GAIT DISTURBANCE [None]
  - MOBILITY DECREASED [None]
  - WEIGHT INCREASED [None]
